FAERS Safety Report 15620111 (Version 1)
Quarter: 2018Q4

REPORT INFORMATION
  Report Type: Spontaneous
  Country: US (occurrence: US)
  Receive Date: 20181115
  Receipt Date: 20181115
  Transmission Date: 20190205
  Serious: Yes (Death)
  Sender: FDA-Public Use
  Company Number: US-AMGEN-USASP2018160176

PATIENT
  Age: 58 Year
  Sex: Female

DRUGS (3)
  1. EPOGEN [Suspect]
     Active Substance: ERYTHROPOIETIN
     Indication: ANAEMIA
     Dosage: UNK
     Route: 065
  2. HEPARIN [Concomitant]
     Active Substance: HEPARIN SODIUM
     Dosage: UNK
  3. ALTEPLASE. [Concomitant]
     Active Substance: ALTEPLASE
     Dosage: UNK

REACTIONS (5)
  - Off label use [Unknown]
  - Distributive shock [Fatal]
  - Haemorrhagic anaemia [Fatal]
  - Lactic acidosis [Fatal]
  - Epistaxis [Fatal]
